FAERS Safety Report 8034336-2 (Version None)
Quarter: 2012Q1

REPORT INFORMATION
  Report Type: 
  Country: None (occurrence: None)
  Receive Date: 20120110
  Receipt Date: 20120104
  Transmission Date: 20120608
  Serious: Yes (Other)
  Sender: FDA-Public Use
  Company Number: PHHY2011BR112487

PATIENT
  Sex: Male

DRUGS (2)
  1. DIOVAN [Suspect]
     Dosage: 320 MG, UNK
  2. DIOVAN [Suspect]
     Dosage: 160 MG, UNK

REACTIONS (7)
  - DISTURBANCE IN ATTENTION [None]
  - SKIN CANCER [None]
  - MOOD ALTERED [None]
  - COGNITIVE DISORDER [None]
  - ANXIETY [None]
  - MEMORY IMPAIRMENT [None]
  - DEPRESSION [None]
